FAERS Safety Report 8434117-1 (Version None)
Quarter: 2012Q2

REPORT INFORMATION
  Report Type: 
  Country: None (occurrence: None)
  Receive Date: 20120613
  Receipt Date: 20120606
  Transmission Date: 20120825
  Serious: Yes (Death, Other)
  Sender: FDA-Public Use
  Company Number: JP-CELGENEUS-087-50794-12061678

PATIENT
  Sex: Male
  Weight: 46 kg

DRUGS (8)
  1. MEROPENEM [Concomitant]
     Route: 065
     Dates: end: 20120321
  2. URSO 250 [Concomitant]
     Route: 065
     Dates: end: 20120321
  3. LIVACT [Concomitant]
     Route: 065
     Dates: end: 20120321
  4. FUNGUARD [Concomitant]
     Route: 065
     Dates: start: 20120314, end: 20120321
  5. VIDAZA [Suspect]
     Dosage: 75 MILLIGRAM/SQ. METER
     Route: 041
     Dates: start: 20120306, end: 20120312
  6. GLUFAST [Concomitant]
     Route: 065
     Dates: end: 20120321
  7. LEVOTHYROXINE SODIUM [Concomitant]
     Route: 065
     Dates: end: 20120321
  8. NOVORAPID 30 MIX [Concomitant]
     Route: 065
     Dates: end: 20120321

REACTIONS (2)
  - HAEMOGLOBIN DECREASED [None]
  - PULMONARY HAEMORRHAGE [None]
